FAERS Safety Report 7996967 (Version 4)
Quarter: 2015Q4

REPORT INFORMATION
  Report Type: Spontaneous
  Country: US (occurrence: US)
  Receive Date: 20110618
  Receipt Date: 20151124
  Transmission Date: 20160305
  Serious: Yes (Hospitalization)
  Sender: FDA-Public Use
  Company Number: US-BAYER-2011-051058

PATIENT
  Age: 32 Year
  Sex: Female
  Weight: 81.63 kg

DRUGS (19)
  1. YASMIN [Suspect]
     Active Substance: DROSPIRENONE\ETHINYL ESTRADIOL
     Indication: CONTRACEPTION
     Dosage: UNK
     Dates: start: 2006, end: 2007
  2. CHANTIX [Concomitant]
     Active Substance: VARENICLINE TARTRATE
     Indication: EX-TOBACCO USER
     Dosage: 1 G, BID
     Route: 048
     Dates: start: 20090407
  3. TESSALON [Concomitant]
     Active Substance: BENZONATATE
     Indication: BRONCHITIS
     Dosage: 100 MG, TID
     Route: 048
     Dates: start: 20090407
  4. OCELLA [Suspect]
     Active Substance: DROSPIRENONE\ETHINYL ESTRADIOL
     Indication: CONTRACEPTION
     Dosage: UNK
     Dates: start: 2006, end: 2007
  5. PROMETHAZINE W/CODEINE [Concomitant]
     Dosage: UNK
     Dates: start: 20090407
  6. AZITHROMYCIN [Concomitant]
     Active Substance: AZITHROMYCIN ANHYDROUS
     Dosage: 250 MG, UNK
     Dates: start: 20090514
  7. HYDROXYZINE HCL [Concomitant]
     Active Substance: HYDROXYZINE HYDROCHLORIDE
     Dosage: 10 MG, UNK
     Dates: start: 20090501
  8. PREDNISONE. [Concomitant]
     Active Substance: PREDNISONE
  9. RETIN-A MICRO [Concomitant]
     Active Substance: TRETINOIN
     Indication: ACNE
     Dosage: UNK
     Route: 061
     Dates: start: 20090407
  10. OCELLA [Suspect]
     Active Substance: DROSPIRENONE\ETHINYL ESTRADIOL
     Indication: CONTRACEPTION
     Dosage: UNK
     Dates: start: 2008, end: 200906
  11. ALLEGRA [Concomitant]
     Active Substance: FEXOFENADINE HYDROCHLORIDE
     Indication: MULTIPLE ALLERGIES
     Dosage: 180 MG, DAILY
     Route: 048
     Dates: start: 20090407
  12. ATIVAN [Concomitant]
     Active Substance: LORAZEPAM
     Indication: ANXIETY
     Dosage: 0.5 MG, BID AS NEEDED
     Route: 048
     Dates: start: 20090407
  13. LABETALOL [Concomitant]
     Active Substance: LABETALOL\LABETALOL HYDROCHLORIDE
     Indication: HYPERTENSION
     Dosage: UNK UNK, QD
     Route: 048
     Dates: start: 20090418
  14. ACETYLSALICYLIC ACID [Concomitant]
     Active Substance: ASPIRIN
  15. AMOXICILLIN. [Concomitant]
     Active Substance: AMOXICILLIN
     Dosage: 500 MG, UNK
     Dates: start: 20090417
  16. MOTRIN [Concomitant]
     Active Substance: IBUPROFEN
  17. YASMIN [Suspect]
     Active Substance: DROSPIRENONE\ETHINYL ESTRADIOL
     Indication: CONTRACEPTION
     Dosage: UNK
     Dates: start: 2008, end: 200906
  18. PAXIL [Concomitant]
     Active Substance: PAROXETINE HYDROCHLORIDE
     Indication: ANXIETY
  19. TORADOL [Concomitant]
     Active Substance: KETOROLAC TROMETHAMINE

REACTIONS (6)
  - Anxiety [None]
  - General physical health deterioration [None]
  - Emotional distress [None]
  - Embolism arterial [None]
  - Pain [None]
  - Cerebrovascular accident [None]

NARRATIVE: CASE EVENT DATE: 200906
